FAERS Safety Report 4500704-6 (Version None)
Quarter: 2004Q4

REPORT INFORMATION
  Report Type: 
  Country: None (occurrence: None)
  Receive Date: 20041115
  Receipt Date: 20041102
  Transmission Date: 20050328
  Serious: Yes (Hospitalization)
  Sender: FDA-Public Use
  Company Number: PHEH2004US11879

PATIENT

DRUGS (6)
  1. ZELNORM [Suspect]
     Indication: IRRITABLE BOWEL SYNDROME
     Dosage: 6 MG, BID
     Route: 048
     Dates: start: 20041003, end: 20041029
  2. SYNTHROID [Concomitant]
  3. OXAZEPAM [Concomitant]
  4. DICYCLOMINE [Concomitant]
  5. CARDURA [Concomitant]
  6. TOPROL-XL [Concomitant]

REACTIONS (4)
  - COLITIS ISCHAEMIC [None]
  - COLONOSCOPY ABNORMAL [None]
  - COMPUTERISED TOMOGRAM ABDOMEN ABNORMAL [None]
  - RECTAL HAEMORRHAGE [None]
